FAERS Safety Report 4329581-3 (Version None)
Quarter: 2004Q2

REPORT INFORMATION
  Report Type: 
  Country: None (occurrence: None)
  Receive Date: 20040401
  Receipt Date: 20031112
  Transmission Date: 20050107
  Serious: Yes (Life-Threatening)
  Sender: FDA-Public Use
  Company Number: JP-ROCHE-351347

PATIENT
  Age: 31 Year
  Sex: Female
  Weight: 51 kg

DRUGS (8)
  1. CAPECITABINE [Suspect]
     Indication: BREAST CANCER
     Dosage: 3 WEEKS ADMINISTRATION 2 WEEKS REST.
     Route: 048
     Dates: start: 20030902, end: 20030922
  2. CAPECITABINE [Suspect]
     Dosage: INTERMITTENT THERAPY OF THREE WEEKS TREATMENT, ONE WEEK REST.
     Route: 048
     Dates: start: 20031011, end: 20031031
  3. CAPECITABINE [Suspect]
     Dosage: 3 WEEKS ADMINISTRATION 1 WEEK REST.
     Route: 048
     Dates: start: 20031107
  4. ZOLADEX [Concomitant]
     Dates: end: 20030804
  5. TAMOXIFEN CITRATE [Concomitant]
     Dates: end: 20030815
  6. MPA [Concomitant]
     Dates: start: 20031107, end: 20031110
  7. PACLITAXEL [Concomitant]
     Dates: end: 20021113
  8. UNKNOWN DRUG [Concomitant]
     Dates: end: 19990823

REACTIONS (22)
  - ALANINE AMINOTRANSFERASE INCREASED [None]
  - AMMONIA INCREASED [None]
  - ANOREXIA [None]
  - ASPARTATE AMINOTRANSFERASE INCREASED [None]
  - ASTHENIA [None]
  - BLOOD ALKALINE PHOSPHATASE INCREASED [None]
  - BLOOD BILIRUBIN INCREASED [None]
  - BREAST CANCER FEMALE [None]
  - CHEST PAIN [None]
  - COMA [None]
  - DISSEMINATED INTRAVASCULAR COAGULATION [None]
  - GAIT DISTURBANCE [None]
  - HEPATIC ENCEPHALOPATHY [None]
  - HEPATIC FAILURE [None]
  - HEPATITIS FULMINANT [None]
  - MALIGNANT NEOPLASM PROGRESSION [None]
  - METASTASES TO BONE [None]
  - NAUSEA [None]
  - PALPITATIONS [None]
  - RENAL FAILURE [None]
  - RESPIRATORY FAILURE [None]
  - WHITE BLOOD CELL COUNT DECREASED [None]
